FAERS Safety Report 19624378 (Version 2)
Quarter: 2021Q3

REPORT INFORMATION
  Report Type: Spontaneous
  Country: CN (occurrence: CN)
  Receive Date: 20210729
  Receipt Date: 20210802
  Transmission Date: 20211014
  Serious: Yes (Other)
  Sender: FDA-Public Use
  Company Number: CN-BAYER-2021-183754

PATIENT
  Age: 80 Year
  Sex: Male
  Weight: 58 kg

DRUGS (2)
  1. AVELOX [Suspect]
     Active Substance: MOXIFLOXACIN HYDROCHLORIDE
     Indication: PNEUMONIA
     Dosage: 1 DF, QD
     Route: 048
     Dates: start: 20210714, end: 20210716
  2. ARBIDOL HYDROCHLORIDE [Suspect]
     Active Substance: UMIFENOVIR HYDROCHLORIDE
     Indication: PNEUMONIA
     Dosage: 2 DF, TID
     Route: 048
     Dates: start: 20210714, end: 20210716

REACTIONS (4)
  - Reduced facial expression [None]
  - Blood pressure diastolic decreased [None]
  - Hallucination [Recovered/Resolved]
  - Delirium [Recovered/Resolved]

NARRATIVE: CASE EVENT DATE: 202107
